FAERS Safety Report 4659171-4 (Version None)
Quarter: 2005Q2

REPORT INFORMATION
  Report Type: 
  Country: None (occurrence: None)
  Receive Date: 20050511
  Receipt Date: 20050506
  Transmission Date: 20051028
  Serious: Yes (Death)
  Sender: FDA-Public Use
  Company Number: 200514022GDDC

PATIENT
  Age: 78 Year
  Sex: Male

DRUGS (11)
  1. NICORANDIL [Suspect]
  2. FUROSEMIDE [Suspect]
  3. BISOPROLOL [Suspect]
  4. ACETAMINOPHEN W/ CODEINE [Suspect]
  5. SIMVASTATIN [Suspect]
  6. ASPIRIN [Suspect]
  7. PARIET [Suspect]
  8. SALBUTAMOL [Suspect]
  9. ISOSORBIDE MONONITRATE [Suspect]
  10. TIOTROPIUM BROMIDE [Suspect]
     Dates: start: 20040201
  11. SERETIDE [Suspect]

REACTIONS (2)
  - LEFT VENTRICULAR FAILURE [None]
  - MYOCARDIAL ISCHAEMIA [None]
